FAERS Safety Report 9164290 (Version 1)
Quarter: 2013Q1

REPORT INFORMATION
  Report Type: Spontaneous
  Country: US (occurrence: None)
  Receive Date: 20130313
  Receipt Date: 20130313
  Transmission Date: 20140127
  Serious: No
  Sender: FDA-Public Use
  Company Number: None

PATIENT
  Age: 49 Year
  Sex: Male
  Weight: 161.03 kg

DRUGS (3)
  1. CLONAZEPAM [Suspect]
     Indication: DEPRESSION
     Route: 048
     Dates: start: 20080201, end: 20130213
  2. CLONAZEPAM [Suspect]
     Indication: PANIC DISORDER
     Route: 048
     Dates: start: 20080201, end: 20130213
  3. FLUOXETINE [Suspect]
     Dosage: .5MG 1PO BID

REACTIONS (6)
  - Headache [None]
  - Rash [None]
  - Depression [None]
  - Anxiety [None]
  - Drug ineffective [None]
  - Product substitution issue [None]
